FAERS Safety Report 6007869-8 (Version None)
Quarter: 2008Q4

REPORT INFORMATION
  Report Type: 
  Country: None (occurrence: None)
  Receive Date: 20081217
  Receipt Date: 20080707
  Transmission Date: 20090506
  Serious: No
  Sender: FDA-Public Use
  Company Number: US-ASTRAZENECA-2008UW13599

PATIENT
  Age: 506 Month
  Sex: Female

DRUGS (1)
  1. CRESTOR [Suspect]
     Route: 048
     Dates: start: 20071221

REACTIONS (3)
  - ARTHRALGIA [None]
  - BACK PAIN [None]
  - CONSTIPATION [None]
